FAERS Safety Report 6817487-7 (Version None)
Quarter: 2010Q3

REPORT INFORMATION
  Report Type: 
  Country: None (occurrence: None)
  Receive Date: 20100706
  Receipt Date: 20100628
  Transmission Date: 20110219
  Serious: Yes (Disabling)
  Sender: FDA-Public Use
  Company Number: B0628702A

PATIENT
  Sex: Female
  Weight: 39 kg

DRUGS (11)
  1. TYKERB [Suspect]
     Indication: BREAST CANCER
     Dosage: 1250MG PER DAY
     Route: 048
     Dates: start: 20091212, end: 20100108
  2. TRASTUZUMAB [Suspect]
     Indication: BREAST CANCER
     Route: 042
     Dates: start: 20090612, end: 20091204
  3. XELODA [Concomitant]
     Indication: BREAST CANCER
     Dosage: 1800MG PER DAY
     Route: 048
     Dates: start: 20091212, end: 20091225
  4. OXYCONTIN [Concomitant]
     Route: 048
     Dates: start: 20091211, end: 20100129
  5. NAPROXEN [Concomitant]
     Route: 048
     Dates: start: 20091225
  6. CODEINE PHOSPHATE [Concomitant]
     Route: 048
     Dates: start: 20100129
  7. ENDOXAN [Concomitant]
     Route: 048
     Dates: start: 20100108, end: 20100219
  8. NAVELBINE [Concomitant]
     Route: 042
     Dates: start: 20100305
  9. LOPERAMIDE [Concomitant]
  10. BIO THREE [Concomitant]
  11. LOPEMIN [Concomitant]
     Route: 048
     Dates: start: 20091225, end: 20100108

REACTIONS (2)
  - CARDIAC FAILURE [None]
  - EJECTION FRACTION DECREASED [None]
